FAERS Safety Report 10613085 (Version 2)
Quarter: 2014Q4

REPORT INFORMATION
  Report Type: Spontaneous
  Country: FR (occurrence: FR)
  Receive Date: 20141128
  Receipt Date: 20141128
  Transmission Date: 20150529
  Serious: Yes (Other)
  Sender: FDA-Public Use
  Company Number: FR-AMGEN-CHESP2014066161

PATIENT
  Age: 67 Year
  Sex: Female
  Weight: 56 kg

DRUGS (1)
  1. PROLIA [Suspect]
     Active Substance: DENOSUMAB
     Indication: OSTEOPOROSIS POSTMENOPAUSAL
     Dosage: 20 MUG, Q6MO
     Route: 058
     Dates: start: 20120214

REACTIONS (1)
  - Thrombocytopenia [Not Recovered/Not Resolved]
